FAERS Safety Report 25096738 (Version 1)
Quarter: 2025Q1

REPORT INFORMATION
  Report Type: Spontaneous
  Country: FR (occurrence: FR)
  Receive Date: 20250319
  Receipt Date: 20250319
  Transmission Date: 20250409
  Serious: Yes (Hospitalization)
  Sender: MERCK SHARP & DOHME LLC
  Company Number: None

PATIENT
  Age: 74 Year
  Sex: Male
  Weight: 90 kg

DRUGS (10)
  1. SIVEXTRO [Suspect]
     Active Substance: TEDIZOLID PHOSPHATE
     Indication: Device related infection
     Dosage: STRENGTH:200 MG
     Route: 048
     Dates: start: 20241231, end: 20250206
  2. FOLIC ACID [Concomitant]
     Active Substance: FOLIC ACID
  3. XARELTO [Concomitant]
     Active Substance: RIVAROXABAN
  4. RAMIPRIL [Concomitant]
     Active Substance: RAMIPRIL
  5. BISOPROLOL FUMARATE [Concomitant]
     Active Substance: BISOPROLOL FUMARATE
  6. LANSOPRAZOLE [Concomitant]
     Active Substance: LANSOPRAZOLE
  7. HYDROXYZINE HYDROCHLORIDE [Concomitant]
     Active Substance: HYDROXYZINE HYDROCHLORIDE
  8. ACETAMINOPHEN [Concomitant]
     Active Substance: ACETAMINOPHEN
  9. ROSUVASTATIN [Concomitant]
     Active Substance: ROSUVASTATIN
  10. SPIRONOLACTONE [Concomitant]
     Active Substance: SPIRONOLACTONE

REACTIONS (3)
  - Thrombocytopenia [Recovered/Resolved]
  - Anaemia [Recovering/Resolving]
  - Neutropenia [Recovering/Resolving]

NARRATIVE: CASE EVENT DATE: 20250102
